FAERS Safety Report 13328824 (Version 1)
Quarter: 2017Q1

REPORT INFORMATION
  Report Type: Spontaneous
  Country: US (occurrence: US)
  Receive Date: 20170312
  Receipt Date: 20170312
  Transmission Date: 20170428
  Serious: Yes (Life-Threatening)
  Sender: FDA-Public Use
  Company Number: None

PATIENT
  Age: 52 Year
  Sex: Male
  Weight: 101.2 kg

DRUGS (15)
  1. METFORMIN [Concomitant]
     Active Substance: METFORMIN HYDROCHLORIDE
  2. CRESTOR [Concomitant]
     Active Substance: ROSUVASTATIN CALCIUM
  3. COMNBERVENT INHAULER [Concomitant]
  4. CALCIUM MAGNESIUM ZINC [Concomitant]
     Active Substance: CALCIUM\MAGNESIUM\ZINC
  5. SYNTHROID [Concomitant]
     Active Substance: LEVOTHYROXINE SODIUM
  6. VITAMIN B6 [Concomitant]
     Active Substance: PYRIDOXINE HYDROCHLORIDE
  7. VITAMIN D [Concomitant]
     Active Substance: CHOLECALCIFEROL
  8. GINKGO BILOBA [Concomitant]
     Active Substance: GINKGO
  9. DDAVP [Suspect]
     Active Substance: DESMOPRESSIN ACETATE
     Indication: HORMONE REPLACEMENT THERAPY
     Dosage: ?          QUANTITY:15 SPRAY(S);?
     Route: 045
     Dates: start: 19920306, end: 20170312
  10. FENO- FIBRIC ACID [Concomitant]
  11. PRO AIR INHAULER [Concomitant]
  12. VITAMIN B12 [Concomitant]
     Active Substance: CYANOCOBALAMIN
  13. MILK THISTLE [Concomitant]
     Active Substance: MILK THISTLE
  14. VITAMIN B1 [Concomitant]
     Active Substance: THIAMINE HYDROCHLORIDE
  15. PREDNISONE. [Concomitant]
     Active Substance: PREDNISONE

REACTIONS (2)
  - Drug dose omission [None]
  - Product container seal issue [None]

NARRATIVE: CASE EVENT DATE: 20170304
